FAERS Safety Report 10548157 (Version 4)
Quarter: 2015Q2

REPORT INFORMATION
  Report Type: Spontaneous
  Country: US (occurrence: US)
  Receive Date: 20141028
  Receipt Date: 20150407
  Transmission Date: 20150821
  Serious: Yes (Death, Hospitalization)
  Sender: FDA-Public Use
  Company Number: US-PFIZER INC-2014294476

PATIENT
  Age: 53 Year
  Sex: Female
  Weight: 57 kg

DRUGS (1)
  1. XALKORI [Suspect]
     Active Substance: CRIZOTINIB
     Indication: NON-SMALL CELL LUNG CANCER STAGE IV
     Dosage: 250 MG, 2X/DAY
     Route: 048
     Dates: start: 20140115, end: 20141013

REACTIONS (10)
  - Product use issue [Unknown]
  - Brain oedema [None]
  - Visual impairment [Unknown]
  - Metastases to central nervous system [None]
  - Thrombophlebitis superficial [Unknown]
  - Disease progression [Fatal]
  - Pleural effusion [Unknown]
  - Non-small cell lung cancer [Fatal]
  - Gastrointestinal disorder [Unknown]
  - Brain herniation [None]

NARRATIVE: CASE EVENT DATE: 2014
